FAERS Safety Report 9397045 (Version 2)
Quarter: 2013Q3

REPORT INFORMATION
  Report Type: Spontaneous
  Country: US (occurrence: US)
  Receive Date: 20130712
  Receipt Date: 20130731
  Transmission Date: 20140515
  Serious: No
  Sender: FDA-Public Use
  Company Number: US-PFIZER INC-2013204791

PATIENT
  Age: 52 Year
  Sex: Female
  Weight: 86.17 kg

DRUGS (17)
  1. RELPAX [Suspect]
     Indication: MIGRAINE
     Dosage: 40 MG, AS NEEDED
     Dates: end: 2012
  2. DILTIAZEM [Concomitant]
     Dosage: 120 MG, 1X/DAY
  3. PROPAFENONE [Concomitant]
     Dosage: UNK (HALF TABLET OF 150 MG), 3X/DAY
  4. WARFARIN [Concomitant]
     Dosage: 5 MG, 1X/DAY
  5. METHADONE [Concomitant]
     Dosage: 10 MG, 3X/DAY
  6. LISINOPRIL [Concomitant]
     Dosage: 20 MG, 1X/DAY
  7. ALPRAZOLAM [Concomitant]
     Dosage: UNK (HALF TABLET OF 2MG), 3X/DAY
  8. TRAZODONE [Concomitant]
     Dosage: 100 MG, 1X/DAY
  9. VENLAFAXINE HYDROCHLORIDE [Concomitant]
     Dosage: 75 MG, 1X/DAY
  10. IBUPROFEN [Concomitant]
     Dosage: 600 MG, 4X/DAY
  11. FOLIC ACID [Concomitant]
     Dosage: UNK, 1X/DAY
  12. VITAMIN B12 [Concomitant]
     Dosage: UNK,1X/DAY
  13. VITAMIN B6 [Concomitant]
     Dosage: UNK, 1X/DAY
  14. CALCIUM [Concomitant]
     Dosage: UNK, 1X/DAY
  15. MAGNESIUM [Concomitant]
     Dosage: UNK, 1X/DAY
  16. PROMETHAZINE [Concomitant]
     Dosage: 25 MG, AS NEEDED
  17. RECLAST [Concomitant]
     Indication: ARTHRITIS
     Dosage: UNK,YEARLY

REACTIONS (1)
  - Migraine [Unknown]
